FAERS Safety Report 14610265 (Version 1)
Quarter: 2018Q1

REPORT INFORMATION
  Report Type: Spontaneous
  Country: US (occurrence: US)
  Receive Date: 20180306
  Receipt Date: 20180306
  Transmission Date: 20180509
  Serious: Yes (Death)
  Sender: FDA-Public Use
  Company Number: None

PATIENT
  Age: 73 Year
  Sex: Female

DRUGS (2)
  1. MYCOPHENOLIC ACID 180 MG DR APOTEX [Suspect]
     Active Substance: MYCOPHENOLIC ACID
     Route: 048
  2. SIROLIMUS 1 MG [Suspect]
     Active Substance: SIROLIMUS
     Indication: RENAL TRANSPLANT
     Route: 048
     Dates: start: 20170406

REACTIONS (1)
  - Death [None]
